FAERS Safety Report 14895129 (Version 6)
Quarter: 2018Q3

REPORT INFORMATION
  Report Type: Report from Study
  Country: PL (occurrence: PL)
  Receive Date: 20180515
  Receipt Date: 20180823
  Transmission Date: 20181010
  Serious: Yes (Hospitalization)
  Sender: FDA-Public Use
  Company Number: PL-ASTRAZENECA-2018SE44043

PATIENT
  Age: 80 Year
  Sex: Male

DRUGS (28)
  1. ACALABRUTINIB. [Suspect]
     Active Substance: ACALABRUTINIB
     Indication: MANTLE CELL LYMPHOMA
     Route: 048
     Dates: start: 20171207, end: 20180103
  2. ACALABRUTINIB. [Suspect]
     Active Substance: ACALABRUTINIB
     Indication: MANTLE CELL LYMPHOMA
     Route: 048
     Dates: start: 20180402, end: 20180402
  3. ACALABRUTINIB. [Suspect]
     Active Substance: ACALABRUTINIB
     Indication: MANTLE CELL LYMPHOMA
     Route: 048
     Dates: start: 20180426, end: 20180426
  4. ACALABRUTINIB. [Suspect]
     Active Substance: ACALABRUTINIB
     Indication: MANTLE CELL LYMPHOMA
     Route: 048
     Dates: start: 20180131, end: 20180228
  5. ACALABRUTINIB. [Suspect]
     Active Substance: ACALABRUTINIB
     Indication: MANTLE CELL LYMPHOMA
     Route: 048
     Dates: start: 20180427, end: 20180502
  6. BENDAMUSTINE [Suspect]
     Active Substance: BENDAMUSTINE
     Indication: MANTLE CELL LYMPHOMA
     Dosage: 156.0MG ONCE/SINGLE ADMINISTRATION
     Route: 042
     Dates: start: 20171207, end: 20171207
  7. BENDAMUSTINE [Suspect]
     Active Substance: BENDAMUSTINE
     Indication: MANTLE CELL LYMPHOMA
     Dosage: 156.0MG ONCE/SINGLE ADMINISTRATION
     Route: 042
     Dates: start: 20180104, end: 20180104
  8. MEGESTROL [Concomitant]
     Active Substance: MEGESTROL
     Indication: DECREASED APPETITE
     Route: 048
     Dates: start: 20180401
  9. BENDAMUSTINE [Suspect]
     Active Substance: BENDAMUSTINE
     Indication: MANTLE CELL LYMPHOMA
     Dosage: 115.0MG ONCE/SINGLE ADMINISTRATION
     Route: 042
     Dates: start: 20180305, end: 20180305
  10. ACALABRUTINIB. [Suspect]
     Active Substance: ACALABRUTINIB
     Indication: MANTLE CELL LYMPHOMA
     Route: 048
     Dates: start: 20180329, end: 20180401
  11. BENDAMUSTINE [Suspect]
     Active Substance: BENDAMUSTINE
     Indication: MANTLE CELL LYMPHOMA
     Dosage: 115.0MG ONCE/SINGLE ADMINISTRATION
     Route: 042
     Dates: start: 20180306, end: 20180306
  12. ALLOPURINOL. [Concomitant]
     Active Substance: ALLOPURINOL
     Indication: TUMOUR LYSIS SYNDROME
     Route: 048
     Dates: start: 20171207
  13. RITUXIMAB. [Suspect]
     Active Substance: RITUXIMAB
     Indication: MANTLE CELL LYMPHOMA
     Dosage: 649.0MG ONCE/SINGLE ADMINISTRATION
     Route: 042
     Dates: start: 20171207, end: 20171207
  14. RITUXIMAB. [Suspect]
     Active Substance: RITUXIMAB
     Indication: MANTLE CELL LYMPHOMA
     Dosage: 649.0MG ONCE/SINGLE ADMINISTRATION
     Route: 042
     Dates: start: 20180131, end: 20180131
  15. ACICLOVIR [Concomitant]
     Active Substance: ACYCLOVIR
     Indication: INFECTION PROPHYLAXIS
     Route: 048
     Dates: start: 20180227
  16. SULFAMETHOXAZOLE?TRIMETHOPRIM [Concomitant]
     Active Substance: SULFAMETHOXAZOLE\TRIMETHOPRIM
     Indication: INFECTION PROPHYLAXIS
     Route: 048
     Dates: start: 20180306
  17. BENDAMUSTINE [Suspect]
     Active Substance: BENDAMUSTINE
     Indication: MANTLE CELL LYMPHOMA
     Dosage: 156.0MG ONCE/SINGLE ADMINISTRATION
     Route: 042
     Dates: start: 20171208, end: 20171208
  18. BENDAMUSTINE [Suspect]
     Active Substance: BENDAMUSTINE
     Indication: MANTLE CELL LYMPHOMA
     Dosage: 156.0MG ONCE/SINGLE ADMINISTRATION
     Route: 042
     Dates: start: 20180105, end: 20180105
  19. BENDAMUSTINE [Suspect]
     Active Substance: BENDAMUSTINE
     Indication: MANTLE CELL LYMPHOMA
     Dosage: 156.0MG ONCE/SINGLE ADMINISTRATION
     Route: 042
     Dates: start: 20180131, end: 20180131
  20. BENDAMUSTINE [Suspect]
     Active Substance: BENDAMUSTINE
     Indication: MANTLE CELL LYMPHOMA
     Dosage: 156.0MG ONCE/SINGLE ADMINISTRATION
     Route: 042
     Dates: start: 20180201, end: 20180201
  21. ACALABRUTINIB. [Suspect]
     Active Substance: ACALABRUTINIB
     Indication: MANTLE CELL LYMPHOMA
     Route: 048
     Dates: start: 20180104, end: 20180130
  22. ACALABRUTINIB. [Suspect]
     Active Substance: ACALABRUTINIB
     Indication: MANTLE CELL LYMPHOMA
     Route: 048
     Dates: start: 20180301, end: 20180328
  23. RITUXIMAB. [Suspect]
     Active Substance: RITUXIMAB
     Indication: MANTLE CELL LYMPHOMA
     Dosage: 592.0MG ONCE/SINGLE ADMINISTRATION
     Route: 042
     Dates: start: 20180426, end: 20180426
  24. METRONIDAZOLE. [Concomitant]
     Active Substance: METRONIDAZOLE
     Indication: INFECTION PROPHYLAXIS
     Route: 048
     Dates: start: 20180324, end: 20180425
  25. RITUXIMAB. [Suspect]
     Active Substance: RITUXIMAB
     Indication: MANTLE CELL LYMPHOMA
     Dosage: 649.0MG ONCE/SINGLE ADMINISTRATION
     Route: 042
     Dates: start: 20180104, end: 20180104
  26. RITUXIMAB. [Suspect]
     Active Substance: RITUXIMAB
     Indication: MANTLE CELL LYMPHOMA
     Dosage: 619.0MG ONCE/SINGLE ADMINISTRATION
     Route: 042
     Dates: start: 20180305, end: 20180305
  27. LACTOBACILLUS SPP [Concomitant]
     Indication: INFECTION PROPHYLAXIS
     Dosage: 1 SACHET ONCE DAILY
     Route: 048
     Dates: start: 20180324
  28. CIPROFLOXACIN. [Concomitant]
     Active Substance: CIPROFLOXACIN
     Indication: DECREASED APPETITE
     Route: 048
     Dates: start: 20180227, end: 20180306

REACTIONS (1)
  - Clostridium difficile colitis [Recovered/Resolved]

NARRATIVE: CASE EVENT DATE: 20180401
